FAERS Safety Report 25455967 (Version 1)
Quarter: 2025Q2

REPORT INFORMATION
  Report Type: Spontaneous
  Country: US (occurrence: US)
  Receive Date: 20250619
  Receipt Date: 20250619
  Transmission Date: 20250716
  Serious: Yes (Other)
  Sender: DR REDDYS
  Company Number: US-DRL-USA-USA/2025/06/008704

PATIENT
  Age: 27 Year
  Sex: Female

DRUGS (9)
  1. FLUOXETINE [Suspect]
     Active Substance: FLUOXETINE HYDROCHLORIDE
     Indication: Major depression
  2. BUPROPION [Suspect]
     Active Substance: BUPROPION
     Indication: Major depression
     Dosage: BUPROPION XL 300 MG DAILY
  3. BUPROPION [Suspect]
     Active Substance: BUPROPION
     Dosage: TITRATED TO 450 MG DAILY
  4. KETAMINE [Suspect]
     Active Substance: KETAMINE
     Indication: Major depression
     Route: 042
  5. LAMOTRIGINE [Suspect]
     Active Substance: LAMOTRIGINE
     Indication: Major depression
  6. LITHIUM [Suspect]
     Active Substance: LITHIUM
     Indication: Major depression
     Dosage: LITHIUM WAS TITRATED TO 600 MG IN THE MORNING AND 900 MG AT NIGHT WITH AN AVERAGE LITHIUM CONCENTRAT
  7. LITHIUM [Suspect]
     Active Substance: LITHIUM
     Dosage: 750 MG DAILY
  8. PRAZOSIN [Suspect]
     Active Substance: PRAZOSIN
     Indication: Nightmare
     Dosage: 5 MG DAILY AT BEDTIME PRAZOSIN
  9. ESKETAMINE [Suspect]
     Active Substance: ESKETAMINE
     Indication: Major depression
     Dosage: 5 MG DAILY AT BEDTIME
     Route: 045

REACTIONS (1)
  - Exposure during pregnancy [Unknown]
